FAERS Safety Report 15014958 (Version 1)
Quarter: 2018Q2

REPORT INFORMATION
  Report Type: Spontaneous
  Country: SE (occurrence: SE)
  Receive Date: 20180615
  Receipt Date: 20180615
  Transmission Date: 20180711
  Serious: Yes (Hospitalization)
  Sender: FDA-Public Use
  Company Number: SE-VIFOR (INTERNATIONAL) INC.-VIT-2018-05925

PATIENT
  Age: 53 Year
  Sex: Female

DRUGS (10)
  1. CILAXORAL [Concomitant]
     Active Substance: SODIUM PICOSULFATE
  2. INNOHEP [Concomitant]
     Active Substance: TINZAPARIN SODIUM
     Dosage: I SAMBAND MED DIALYS
  3. JAERNSACKAROS RECHON [Concomitant]
     Dosage: I SAMBAND MED DIALYS
  4. ALLOPURINOL. [Concomitant]
     Active Substance: ALLOPURINOL
  5. EMLA [Concomitant]
     Active Substance: LIDOCAINE\PRILOCAINE
  6. ETALPHA [Concomitant]
     Active Substance: ALFACALCIDOL
     Dosage: I SAMBAND MED DIALYS
  7. RETACRIT [Concomitant]
     Active Substance: EPOETIN ALFA-EPBX
     Dosage: I SAMBAND MED DIALYS
  8. VELPHORO [Suspect]
     Active Substance: FERRIC OXYHYDROXIDE
     Indication: BLOOD PHOSPHORUS
     Route: 048
     Dates: start: 20151120, end: 20151203
  9. MIRENA [Concomitant]
     Active Substance: LEVONORGESTREL
  10. ORALOVITE [Concomitant]
     Active Substance: ASCORBIC ACID\NIACINAMIDE\PYRIDOXINE\RIBOFLAVIN\THIAMINE

REACTIONS (4)
  - Diarrhoea [Recovered/Resolved]
  - Melaena [Recovered/Resolved]
  - Vomiting [Recovered/Resolved]
  - Nausea [Recovered/Resolved]

NARRATIVE: CASE EVENT DATE: 20151203
